FAERS Safety Report 25567556 (Version 2)
Quarter: 2025Q4

REPORT INFORMATION
  Report Type: Spontaneous
  Country: US (occurrence: US)
  Receive Date: 20250716
  Receipt Date: 20251014
  Transmission Date: 20260117
  Serious: No
  Sender: FENNEC PHARMACEUTICALS
  Company Number: US-FENNEC PHARMACEUTICALS, INC.-2025FEN00059

PATIENT
  Sex: Female
  Weight: 58.05 kg

DRUGS (19)
  1. PEDMARK [Suspect]
     Active Substance: SODIUM THIOSULFATE
     Indication: Ototoxicity
     Dosage: 3000 MG (30 G; 20 MG/M2), EVERY 3 WEEKS
     Route: 042
     Dates: start: 20250603
  2. PEDMARK [Suspect]
     Active Substance: SODIUM THIOSULFATE
     Dosage: 30 GRAMS IV OVER 45 MINUTES FOR FIRST AND IF TOLERATES X 30 MINUTES
     Route: 042
     Dates: start: 20250805
  3. PEDMARK [Suspect]
     Active Substance: SODIUM THIOSULFATE
     Dosage: 30 GRAMS IV OVER 30 MINUTES / 3 VIALS PER INFUSION
     Route: 042
     Dates: start: 20250902
  4. PEDMARK [Suspect]
     Active Substance: SODIUM THIOSULFATE
     Dosage: 30.2 GRAMS IV OVER 30 MINUTES / 3 VIALS PER INFUSION
     Route: 042
     Dates: start: 20250926
  5. CISPLATIN [Concomitant]
     Active Substance: CISPLATIN
     Dosage: UNK
     Dates: start: 20250512
  6. ALUMINUM HYDROXIDE\DIMETHICONE\MAGNESIUM HYDROXIDE [Concomitant]
     Active Substance: ALUMINUM HYDROXIDE\DIMETHICONE\MAGNESIUM HYDROXIDE
  7. IBUPROFEN [Concomitant]
     Active Substance: IBUPROFEN
  8. ROXICODONE [Concomitant]
     Active Substance: OXYCODONE HYDROCHLORIDE
  9. DECADRON [Concomitant]
     Active Substance: DEXAMETHASONE
  10. ZYPREXA [Concomitant]
     Active Substance: OLANZAPINE
  11. TYLENOL [Concomitant]
     Active Substance: ACETAMINOPHEN
  12. ZOFRAN [Concomitant]
     Active Substance: ONDANSETRON HYDROCHLORIDE
  13. VITAMIN D3 [Concomitant]
     Active Substance: CHOLECALCIFEROL
  14. PEPCID [Concomitant]
     Active Substance: FAMOTIDINE
  15. CRESTOR [Concomitant]
     Active Substance: ROSUVASTATIN CALCIUM
  16. MICARDIS [Concomitant]
     Active Substance: TELMISARTAN
  17. DILANTIN [Concomitant]
     Active Substance: PHENYTOIN
  18. COMPAZINE [Concomitant]
     Active Substance: PROCHLORPERAZINE MALEATE
  19. JARDIANCE [Concomitant]
     Active Substance: EMPAGLIFLOZIN

REACTIONS (11)
  - Nasal congestion [Unknown]
  - Peripheral swelling [Recovering/Resolving]
  - Erythema [Unknown]
  - Asthenia [Unknown]
  - Pruritus [Unknown]
  - Hypoacusis [Not Recovered/Not Resolved]
  - Headache [Unknown]
  - Decreased appetite [Unknown]
  - Nausea [Unknown]
  - Off label use [Unknown]
  - Inappropriate schedule of product administration [Unknown]

NARRATIVE: CASE EVENT DATE: 20250101
